FAERS Safety Report 14915742 (Version 3)
Quarter: 2018Q3

REPORT INFORMATION
  Report Type: Report from Study
  Country: DE (occurrence: DE)
  Receive Date: 20180518
  Receipt Date: 20180903
  Transmission Date: 20181010
  Serious: Yes (Hospitalization, Other)
  Sender: FDA-Public Use
  Company Number: PHHY2012DE067173

PATIENT
  Age: 69 Year
  Sex: Female
  Weight: 68 kg

DRUGS (1)
  1. TASIGNA [Suspect]
     Active Substance: NILOTINIB
     Indication: CHRONIC MYELOID LEUKAEMIA
     Dosage: 800 MG, QD
     Route: 048
     Dates: start: 20100122

REACTIONS (13)
  - Spinal epidural haemorrhage [Recovered/Resolved]
  - Pain [Recovered/Resolved]
  - Paresis [Unknown]
  - Alopecia [Not Recovered/Not Resolved]
  - Left ventricular failure [Recovered/Resolved]
  - Hypermobility syndrome [Unknown]
  - Hypokalaemia [Recovered/Resolved]
  - Pleural effusion [Recovered/Resolved]
  - Intervertebral disc protrusion [Recovered/Resolved]
  - Pneumonia [Recovered/Resolved]
  - Atrial fibrillation [Recovered/Resolved]
  - Muscular weakness [Recovered/Resolved]
  - Atrial fibrillation [Recovered/Resolved]

NARRATIVE: CASE EVENT DATE: 201108
